FAERS Safety Report 6209611-4 (Version None)
Quarter: 2009Q2

REPORT INFORMATION
  Report Type: 
  Country: None (occurrence: None)
  Receive Date: 20090527
  Receipt Date: 20090512
  Transmission Date: 20091009
  Serious: Yes (Life-Threatening, Other)
  Sender: FDA-Public Use
  Company Number: 2009S1008802

PATIENT
  Age: 35 Year
  Sex: Female

DRUGS (7)
  1. ONDANSETRON HCL [Suspect]
     Indication: DRUG USE FOR UNKNOWN INDICATION
     Dosage: 4 MG; INTRAVENOUS
     Route: 042
  2. COCAINE (COCAINE) [Suspect]
     Indication: DRUG USE FOR UNKNOWN INDICATION
  3. DICLOFENAC SODIUM [Concomitant]
  4. FENTANYL [Concomitant]
  5. NITROUS OXIDE [Concomitant]
  6. PROPOFOL [Concomitant]
  7. SEVOFLURANE [Concomitant]

REACTIONS (2)
  - CARDIAC ARREST [None]
  - LONG QT SYNDROME [None]
